FAERS Safety Report 7339987-6 (Version None)
Quarter: 2011Q1

REPORT INFORMATION
  Report Type: 
  Country: None (occurrence: None)
  Receive Date: 20110309
  Receipt Date: 20110304
  Transmission Date: 20110831
  Serious: No
  Sender: FDA-Public Use
  Company Number: US-PFIZER INC-US-WYE-H16793310

PATIENT
  Age: 47 Year
  Sex: Female

DRUGS (14)
  1. ASPIRIN [Interacting]
     Indication: PAIN
     Route: 065
  2. MIRTAZAPINE [Interacting]
     Route: 065
  3. ADVIL EXTRA STRENGTH [Suspect]
     Indication: PAIN
     Route: 048
  4. XANAX [Interacting]
     Indication: SLEEP DISORDER
  5. ESOMEPRAZOLE MAGNESIUM [Interacting]
     Indication: GASTROOESOPHAGEAL REFLUX DISEASE
     Route: 048
  6. FLUTICASONE PROPIONATE [Interacting]
     Indication: ASTHMA
     Dosage: UNK
     Route: 065
  7. GABAPENTIN [Interacting]
     Indication: NEUROPATHY PERIPHERAL
     Dosage: 300 MG, UNK
     Route: 048
  8. MACROGOL [Concomitant]
     Route: 065
  9. SERETIDE MITE [Interacting]
     Indication: ASTHMA
     Route: 065
  10. ATROVENT [Interacting]
     Indication: ASTHMA
     Route: 048
  11. LEVOXYL [Interacting]
     Indication: HYPOTHYROIDISM
     Dosage: 100 MG, 1X/DAY
     Route: 048
  12. CYMBALTA [Interacting]
     Indication: PAIN
     Route: 065
  13. XANAX [Interacting]
     Indication: ANXIETY
     Dosage: UNK DOSE EVERY OTHER DAY
     Route: 048
     Dates: start: 20080101
  14. SIMVASTATIN [Interacting]
     Indication: HYPERCHOLESTEROLAEMIA
     Route: 065

REACTIONS (2)
  - RASH [None]
  - DRUG INTERACTION [None]
